FAERS Safety Report 4685643-2 (Version None)
Quarter: 2005Q2

REPORT INFORMATION
  Report Type: 
  Country: None (occurrence: None)
  Receive Date: 20050608
  Receipt Date: 20050601
  Transmission Date: 20051028
  Serious: Yes (Disabling)
  Sender: FDA-Public Use
  Company Number: US-MERCK-0506USA00563

PATIENT
  Age: 45 Year
  Sex: Male
  Weight: 113 kg

DRUGS (5)
  1. VIOXX [Suspect]
     Indication: BACK PAIN
     Route: 048
     Dates: start: 20020207, end: 20030903
  2. VIOXX [Suspect]
     Route: 048
     Dates: start: 20020207, end: 20030903
  3. VIOXX [Suspect]
     Indication: PAIN IN EXTREMITY
     Route: 048
     Dates: start: 20020207, end: 20030903
  4. VIOXX [Suspect]
     Route: 048
     Dates: start: 20020207, end: 20030903
  5. MOTRIN [Concomitant]
     Route: 065
     Dates: start: 20020207, end: 20020222

REACTIONS (4)
  - BLINDNESS [None]
  - CEREBROVASCULAR ACCIDENT [None]
  - EMOTIONAL DISTRESS [None]
  - HEART RATE IRREGULAR [None]
